FAERS Safety Report 12634921 (Version 1)
Quarter: 2016Q3

REPORT INFORMATION
  Report Type: Spontaneous
  Country: US (occurrence: US)
  Receive Date: 20160809
  Receipt Date: 20160809
  Transmission Date: 20161109
  Serious: No
  Sender: FDA-Public Use
  Company Number: US-PFIZER INC-2016348107

PATIENT
  Age: 83 Year
  Sex: Female
  Weight: 82 kg

DRUGS (1)
  1. REVATIO [Suspect]
     Active Substance: SILDENAFIL CITRATE
     Dosage: 2X/DAY, SHE TOOK ONE AT 8:00 THIS MORNING AND AT 2:00 AND IT WAS 6 HOURS APART

REACTIONS (1)
  - Asthenia [Unknown]
